FAERS Safety Report 4925033-8 (Version None)
Quarter: 2006Q1

REPORT INFORMATION
  Report Type: 
  Country: None (occurrence: None)
  Receive Date: 20060222
  Receipt Date: 20060206
  Transmission Date: 20060701
  Serious: Yes (Hospitalization)
  Sender: FDA-Public Use
  Company Number: MC200501141

PATIENT
  Age: 84 Year
  Sex: Female
  Weight: 68 kg

DRUGS (8)
  1. ANGIOMAX [Suspect]
     Indication: ARTERIOGRAM CORONARY
     Dosage: 0.75 MG/KG, BOLUS, IV BOLUS : 1.75 MG/KG, HR, INTRAVENOUS
     Route: 040
     Dates: start: 20051212, end: 20051212
  2. ANGIOMAX [Suspect]
     Indication: ARTERIOGRAM CORONARY
     Dosage: 0.75 MG/KG, BOLUS, IV BOLUS : 1.75 MG/KG, HR, INTRAVENOUS
     Route: 040
     Dates: start: 20051212, end: 20051212
  3. ISOVUE-300 [Suspect]
     Indication: ARTERIOGRAM CORONARY
     Dosage: 350 ML,
     Dates: start: 20051212, end: 20051212
  4. VALIUM [Concomitant]
  5. BENADRYL [Concomitant]
  6. VERSED [Concomitant]
  7. FENTANYL CITRATE [Concomitant]
  8. OXYGEN [Concomitant]

REACTIONS (11)
  - ANAPHYLACTIC REACTION [None]
  - BLOOD PRESSURE SYSTOLIC DECREASED [None]
  - CONVULSION [None]
  - HAEMATOCRIT DECREASED [None]
  - LYMPHOCYTE COUNT DECREASED [None]
  - NEUTROPHIL COUNT INCREASED [None]
  - RESPIRATORY ARREST [None]
  - SUPRAVENTRICULAR TACHYCARDIA [None]
  - THERAPY NON-RESPONDER [None]
  - THROAT TIGHTNESS [None]
  - WHITE BLOOD CELL COUNT INCREASED [None]
